FAERS Safety Report 4566555-1 (Version None)
Quarter: 2005Q1

REPORT INFORMATION
  Report Type: 
  Country: None (occurrence: None)
  Receive Date: 20050126
  Receipt Date: 20050126
  Transmission Date: 20050727
  Serious: No
  Sender: FDA-Public Use
  Company Number: None

PATIENT
  Sex: Male

DRUGS (1)
  1. BETAPACE AF [Suspect]
     Dosage: PO BID
     Route: 048
     Dates: start: 20041201, end: 20050414

REACTIONS (1)
  - DRUG INEFFECTIVE [None]
